FAERS Safety Report 24964876 (Version 1)
Quarter: 2025Q1

REPORT INFORMATION
  Report Type: Spontaneous
  Country: US (occurrence: None)
  Receive Date: 20250212
  Receipt Date: 20250212
  Transmission Date: 20250408
  Serious: No
  Sender: FDA-CTU
  Company Number: None

PATIENT
  Age: 74 Year
  Sex: Male

DRUGS (1)
  1. PIRFENIDONE [Suspect]
     Active Substance: PIRFENIDONE
     Indication: Interstitial lung disease
     Dosage: FREQUENCY : 3 TIMES A DAY;?
     Route: 048
     Dates: start: 20241010, end: 20250131

REACTIONS (7)
  - Pruritus [None]
  - Rash erythematous [None]
  - Rash [None]
  - Cheilitis [None]
  - Drug ineffective [None]
  - Drug eruption [None]
  - Therapy interrupted [None]

NARRATIVE: CASE EVENT DATE: 20250131
